FAERS Safety Report 5252237-X (Version None)
Quarter: 2007Q1

REPORT INFORMATION
  Report Type: 
  Country: None (occurrence: None)
  Receive Date: 20070227
  Receipt Date: 20070227
  Transmission Date: 20070707
  Serious: Yes (Hospitalization, Disabling)
  Sender: FDA-Public Use
  Company Number: None

PATIENT
  Sex: Female
  Weight: 68.0396 kg

DRUGS (1)
  1. ALBUTEROL [Suspect]
     Indication: ASTHMA
     Dosage: 2 PUFFS  1 TIME  PO
     Route: 048
     Dates: start: 20070224, end: 20070224

REACTIONS (3)
  - ADVERSE DRUG REACTION [None]
  - ASTHMA [None]
  - PHARMACEUTICAL PRODUCT COMPLAINT [None]
